FAERS Safety Report 16129688 (Version 1)
Quarter: 2019Q1

REPORT INFORMATION
  Report Type: Spontaneous
  Country: FR (occurrence: FR)
  Receive Date: 20190328
  Receipt Date: 20190328
  Transmission Date: 20190418
  Serious: Yes (Life-Threatening)
  Sender: FDA-Public Use
  Company Number: FR-PFIZER INC-2019134495

PATIENT
  Age: 49 Year
  Sex: Female

DRUGS (8)
  1. SUFENTA [Suspect]
     Active Substance: SUFENTANIL CITRATE
     Indication: NEUROMUSCULAR BLOCKING THERAPY
     Dosage: 1 DF, UNK
     Route: 041
     Dates: start: 20190225, end: 20190225
  2. LIDOCAINE. [Suspect]
     Active Substance: LIDOCAINE
     Indication: INDUCTION OF ANAESTHESIA
     Dosage: 1 DF, UNK
     Route: 041
     Dates: start: 20190225, end: 20190225
  3. PROPOFOL. [Suspect]
     Active Substance: PROPOFOL
     Indication: INDUCTION OF ANAESTHESIA
     Dosage: 1 DF, UNK
     Route: 041
     Dates: start: 20190225, end: 20190225
  4. CELOCURINE [SUXAMETHONIUM CHLORIDE] [Suspect]
     Active Substance: SUCCINYLCHOLINE CHLORIDE
     Indication: INDUCTION OF ANAESTHESIA
     Dosage: 1 DF, UNK
     Route: 042
     Dates: start: 20190225, end: 20190225
  5. KETAMINE [Suspect]
     Active Substance: KETAMINE
     Indication: NEUROMUSCULAR BLOCKING THERAPY
     Dosage: 1 DF, UNK
     Route: 041
     Dates: start: 20190225, end: 20190225
  6. ATRACURIUM BESILATE [Suspect]
     Active Substance: ATRACURIUM BESYLATE
     Indication: GENERAL ANAESTHESIA
     Dosage: 1 DF, UNK
     Route: 042
     Dates: start: 20190225, end: 20190225
  7. GENTAMICINE [GENTAMICIN SULFATE] [Suspect]
     Active Substance: GENTAMICIN SULFATE
     Indication: ANTIBIOTIC PROPHYLAXIS
     Dosage: 1 DF, UNK
     Route: 041
     Dates: start: 20190225, end: 20190225
  8. METRONIDAZOLE. [Suspect]
     Active Substance: METRONIDAZOLE
     Indication: ANTIBIOTIC PROPHYLAXIS
     Dosage: 1 DF, UNK
     Route: 041
     Dates: start: 20190225, end: 20190225

REACTIONS (1)
  - Anaphylactoid shock [Not Recovered/Not Resolved]

NARRATIVE: CASE EVENT DATE: 20190225
